FAERS Safety Report 5014887-5 (Version None)
Quarter: 2006Q2

REPORT INFORMATION
  Report Type: 
  Country: None (occurrence: None)
  Receive Date: 20060414
  Receipt Date: 20060119
  Transmission Date: 20061013
  Serious: No
  Sender: FDA-Public Use
  Company Number: 2006SP000332

PATIENT
  Age: 25 Year
  Sex: Female
  Weight: 72.5755 kg

DRUGS (4)
  1. LUNESTA [Suspect]
     Indication: INSOMNIA
     Dosage: 3 MG;HS;ORAL  : 6 MG;HS;ORAL
     Route: 048
     Dates: start: 20050801, end: 20060101
  2. LUNESTA [Suspect]
     Indication: INSOMNIA
     Dosage: 3 MG;HS;ORAL  : 6 MG;HS;ORAL
     Route: 048
     Dates: start: 20060101
  3. LAMOTRIGINE [Concomitant]
  4. MULTIVITAMIN [Concomitant]

REACTIONS (1)
  - DRUG EFFECT DECREASED [None]
